FAERS Safety Report 7356193-X (Version None)
Quarter: 2011Q1

REPORT INFORMATION
  Report Type: 
  Country: None (occurrence: None)
  Receive Date: 20110316
  Receipt Date: 20110310
  Transmission Date: 20110831
  Serious: Yes (Hospitalization, Other)
  Sender: FDA-Public Use
  Company Number: IL-PFIZER INC-2011043741

PATIENT
  Age: 40 Year
  Sex: Female

DRUGS (3)
  1. LAMICTAL [Concomitant]
  2. GEODON [Suspect]
     Dosage: 60 MG, 2X/DAY
  3. GEODON [Suspect]
     Dosage: 60 MG, 1X/DAY

REACTIONS (1)
  - INTRACRANIAL PRESSURE INCREASED [None]
